FAERS Safety Report 9113484 (Version 2)
Quarter: 2013Q1

REPORT INFORMATION
  Report Type: Spontaneous
  Country: US (occurrence: US)
  Receive Date: 20130129
  Receipt Date: 20130313
  Transmission Date: 20140127
  Serious: No
  Sender: FDA-Public Use
  Company Number: US-009507513-1301USA013343

PATIENT
  Sex: Female
  Weight: 89.8 kg

DRUGS (3)
  1. CLARITIN REDITABS [Suspect]
     Indication: PRODUCT USED FOR UNKNOWN INDICATION
     Dosage: UNK, QD
     Route: 048
     Dates: start: 201301
  2. CLARITIN REDITABS [Suspect]
     Indication: MEDICAL OBSERVATION
  3. HYDROCHLOROTHIAZIDE (+) LISINOPRIL [Concomitant]
     Indication: HYPERTENSION
     Dosage: UNK, QD

REACTIONS (2)
  - Condition aggravated [Unknown]
  - Drug ineffective [Unknown]
